FAERS Safety Report 7410037-6 (Version None)
Quarter: 2011Q2

REPORT INFORMATION
  Report Type: 
  Country: None (occurrence: None)
  Receive Date: 20110412
  Receipt Date: 20110315
  Transmission Date: 20111010
  Serious: No
  Sender: FDA-Public Use
  Company Number: US-BAYER-2011-026324

PATIENT
  Age: 18 Year
  Weight: 59 kg

DRUGS (3)
  1. HYDROCODONE [Concomitant]
     Indication: TOOTHACHE
     Dosage: UNK
     Route: 048
     Dates: start: 20110311, end: 20110314
  2. CONTRACEPTIVES NOS [Concomitant]
     Indication: CONTRACEPTION
     Dosage: UNK
     Route: 048
  3. ALEVE (CAPLET) [Suspect]
     Indication: TOOTHACHE
     Dosage: 4 DF, UNK
     Route: 048
     Dates: start: 20110315, end: 20110315

REACTIONS (1)
  - NO ADVERSE EVENT [None]
